FAERS Safety Report 4521181-5 (Version None)
Quarter: 2004Q4

REPORT INFORMATION
  Report Type: 
  Country: None (occurrence: None)
  Receive Date: 20041208
  Receipt Date: 20041118
  Transmission Date: 20050328
  Serious: Yes (Life-Threatening, Hospitalization, Disabling)
  Sender: FDA-Public Use
  Company Number: US-MERCK-0411USA03145

PATIENT
  Age: 77 Year
  Sex: Female

DRUGS (3)
  1. VIOXX [Suspect]
     Indication: ARTHRITIS
     Route: 048
     Dates: start: 19991129, end: 20040930
  2. FOSAMAX [Concomitant]
     Route: 065
  3. LIPITOR [Concomitant]
     Route: 065

REACTIONS (4)
  - BRAIN DAMAGE [None]
  - CEREBROVASCULAR ACCIDENT [None]
  - HYPOAESTHESIA [None]
  - VISUAL DISTURBANCE [None]
